FAERS Safety Report 4284911-6 (Version None)
Quarter: 2004Q1

REPORT INFORMATION
  Report Type: 
  Country: None (occurrence: None)
  Receive Date: 20040121
  Receipt Date: 20021124
  Transmission Date: 20041129
  Serious: Yes (Other)
  Sender: FDA-Public Use
  Company Number: A03200201420

PATIENT
  Age: 44 Year
  Sex: Male

DRUGS (5)
  1. PLAVIX [Suspect]
     Indication: CHEST PAIN
     Dosage: 75 MG QD - ORAL
     Route: 048
     Dates: start: 20021124
  2. ACETYLSALICYLIC ACID SRT [Concomitant]
  3. ENALAPRIL MALEATE [Concomitant]
  4. GLIPIZIDE [Concomitant]
  5. METOPROLOL TARTRATE [Concomitant]

REACTIONS (1)
  - HEPATIC ENZYME INCREASED [None]
